FAERS Safety Report 18839586 (Version 1)
Quarter: 2021Q1

REPORT INFORMATION
  Report Type: Report from Study
  Country: US (occurrence: US)
  Receive Date: 20210203
  Receipt Date: 20210203
  Transmission Date: 20210419
  Serious: No
  Sender: FDA-Public Use
  Company Number: US-EXELIXIS-CABO-20034649

PATIENT
  Sex: Male

DRUGS (1)
  1. CABOMETYX [Suspect]
     Active Substance: CABOZANTINIB S-MALATE
     Indication: PROSTATE CANCER
     Dosage: 40 MG, QD
     Dates: start: 20201009, end: 20201112

REACTIONS (7)
  - Confusional state [Unknown]
  - Diarrhoea [Unknown]
  - Off label use [Unknown]
  - Cognitive disorder [Unknown]
  - Pain [Unknown]
  - Constipation [Unknown]
  - Blister [Unknown]
